FAERS Safety Report 24006126 (Version 1)
Quarter: 2024Q2

REPORT INFORMATION
  Report Type: Spontaneous
  Country: US (occurrence: US)
  Receive Date: 20240624
  Receipt Date: 20240624
  Transmission Date: 20240716
  Serious: No
  Sender: FDA-Public Use
  Company Number: US-DRL-USA-LIT/USA/24/0008877

PATIENT
  Age: 66 Year
  Sex: Female

DRUGS (10)
  1. CYCLOSPORINE [Suspect]
     Active Substance: CYCLOSPORINE
     Indication: Cutaneous amyloidosis
  2. TACROLIMUS [Suspect]
     Active Substance: TACROLIMUS
     Indication: Cutaneous amyloidosis
  3. APREMILAST [Suspect]
     Active Substance: APREMILAST
     Indication: Cutaneous amyloidosis
     Route: 048
  4. MENTHOL [Concomitant]
     Active Substance: MENTHOL
     Indication: Cutaneous amyloidosis
     Route: 061
  5. PRAMOXINE [Concomitant]
     Active Substance: PRAMOXINE
     Indication: Cutaneous amyloidosis
     Route: 061
  6. HYDROXYCHLOROQUINE [Concomitant]
     Active Substance: HYDROXYCHLOROQUINE
     Indication: Cutaneous amyloidosis
     Route: 048
  7. METHOTREXATE [Concomitant]
     Active Substance: METHOTREXATE
     Indication: Cutaneous amyloidosis
     Route: 048
  8. ACITRETIN [Concomitant]
     Active Substance: ACITRETIN
     Indication: Cutaneous amyloidosis
     Route: 048
  9. DUPILUMAB [Concomitant]
     Active Substance: DUPILUMAB
     Indication: Cutaneous amyloidosis
     Dosage: INJECTABLE
  10. ETANERCEPT [Concomitant]
     Active Substance: ETANERCEPT
     Indication: Cutaneous amyloidosis
     Dosage: INJECTABLE

REACTIONS (3)
  - Drug intolerance [Unknown]
  - Drug ineffective for unapproved indication [Unknown]
  - Product use in unapproved indication [Unknown]
